FAERS Safety Report 6119905-9 (Version None)
Quarter: 2009Q1

REPORT INFORMATION
  Report Type: 
  Country: None (occurrence: None)
  Receive Date: 20090316
  Receipt Date: 20090312
  Transmission Date: 20090719
  Serious: Yes (Death, Hospitalization)
  Sender: FDA-Public Use
  Company Number: NL-SANOFI-SYNTHELABO-F01200600676

PATIENT
  Sex: Female

DRUGS (10)
  1. AMITRIPTYLINE [Concomitant]
     Dosage: UNK
  2. DEXAMETHASONE [Concomitant]
     Dosage: UNK
  3. PANTOZOL [Concomitant]
     Dosage: UNK
  4. NAPROXEN [Concomitant]
     Dosage: UNK
  5. MOVICOLON [Concomitant]
     Dosage: UNK
  6. AMARYL [Concomitant]
     Dosage: UNK
  7. DURAGESIC-100 [Concomitant]
     Dosage: UNK
  8. CAPECITABINE [Suspect]
     Dosage: DAYS 1-14 (1250 MG/M2 AFTER CYCLE 6), Q3W
     Route: 048
     Dates: start: 20060222
  9. OXALIPLATIN [Suspect]
     Indication: COLORECTAL CANCER
     Route: 041
     Dates: start: 20060222, end: 20060222
  10. BEVACIZUMAB [Suspect]
     Route: 041
     Dates: start: 20060222, end: 20060222

REACTIONS (2)
  - GASTROINTESTINAL PERFORATION [None]
  - PNEUMONIA [None]
